FAERS Safety Report 8323060-4 (Version None)
Quarter: 2012Q2

REPORT INFORMATION
  Report Type: 
  Country: None (occurrence: None)
  Receive Date: 20120430
  Receipt Date: 20120419
  Transmission Date: 20120825
  Serious: Yes (Other)
  Sender: FDA-Public Use
  Company Number: US-JNJFOC-20120409412

PATIENT
  Age: 60 Year
  Sex: Female

DRUGS (2)
  1. REMICADE [Suspect]
     Indication: PSORIATIC ARTHROPATHY
     Dosage: DURATION OF 2 YEARS
     Route: 042
     Dates: start: 20100101, end: 20120101
  2. METHOTREXATE [Concomitant]
     Dosage: LOW DOSE; DURATION OF 2 YEARS
     Dates: start: 20100101, end: 20120101

REACTIONS (1)
  - LYMPHOCYTIC LEUKAEMIA [None]
